FAERS Safety Report 6569319-2 (Version None)
Quarter: 2010Q1

REPORT INFORMATION
  Report Type: 
  Country: None (occurrence: None)
  Receive Date: 20100203
  Receipt Date: 20100121
  Transmission Date: 20100710
  Serious: Yes (Other)
  Sender: FDA-Public Use
  Company Number: GB-B.I. PHARMACEUTICALS,INC./RIDGEFIELD-2010-UK-00050UK

PATIENT
  Sex: Male

DRUGS (11)
  1. MIRAPEX [Suspect]
     Indication: PARKINSON'S DISEASE
     Dosage: 180X3 TABLETS TDS
     Route: 048
     Dates: start: 20071101
  2. MIRAPEX [Suspect]
     Dosage: 180X2 TDS
     Route: 048
  3. AMANTADINE HCL [Concomitant]
     Indication: PARKINSON'S DISEASE
     Dosage: 200 MG
     Route: 048
     Dates: start: 20080701
  4. SINEMET CR [Concomitant]
     Indication: PARKINSON'S DISEASE
     Dosage: 1100 NR
     Route: 048
     Dates: start: 20030101
  5. QUININE SULFATE [Concomitant]
     Indication: MUSCLE SPASMS
     Route: 048
  6. IBUPROFEN [Concomitant]
     Indication: PAIN
     Route: 048
  7. MADOPAR [Concomitant]
     Indication: PARKINSON'S DISEASE
     Dosage: 62.5 NR
     Route: 048
     Dates: start: 20070101
  8. ZELAPAR [Concomitant]
     Indication: PARKINSON'S DISEASE
     Dosage: 1.25 MG
     Route: 048
     Dates: start: 20060101
  9. HALF  SINEMET CR [Concomitant]
     Indication: PARKINSON'S DISEASE
     Dosage: 1-2TABLETSS PER DAY
     Route: 048
     Dates: start: 20050101
  10. ENTACAPONE [Concomitant]
     Indication: PARKINSON'S DISEASE
     Dosage: 200X5 PER DAY
     Route: 048
     Dates: start: 20041101
  11. PRAZOSIN HYDROCHLORIDE [Concomitant]
     Indication: BLADDER DISORDER
     Dosage: 500 MCG
     Route: 048

REACTIONS (2)
  - DISINHIBITION [None]
  - EXCESSIVE SEXUAL FANTASIES [None]
